FAERS Safety Report 9214330 (Version 2)
Quarter: 2013Q2

REPORT INFORMATION
  Report Type: Spontaneous
  Country: US (occurrence: US)
  Receive Date: 20130405
  Receipt Date: 20130418
  Transmission Date: 20140414
  Serious: Yes (Other)
  Sender: FDA-Public Use
  Company Number: US-PFIZER INC-2010176664

PATIENT
  Age: 68 Year
  Sex: Male
  Weight: 127 kg

DRUGS (3)
  1. LYRICA [Suspect]
     Indication: DIABETIC NEUROPATHY
     Dosage: 75 MG, 2X/DAY
     Dates: start: 2004
  2. METFORMIN [Concomitant]
     Indication: DIABETES MELLITUS
     Dosage: 850 MG, 3X/DAY
  3. LOSARTAN [Concomitant]
     Indication: HYPERTENSION
     Dosage: 35 MG, 1X/DAY

REACTIONS (1)
  - Deafness [Not Recovered/Not Resolved]
